FAERS Safety Report 4811114-6 (Version None)
Quarter: 2005Q4

REPORT INFORMATION
  Report Type: 
  Country: None (occurrence: None)
  Receive Date: 20051025
  Receipt Date: 20051013
  Transmission Date: 20060501
  Serious: Yes (Hospitalization)
  Sender: FDA-Public Use
  Company Number: 2005BI000908

PATIENT
  Age: 57 Year
  Sex: Female

DRUGS (1)
  1. AVONEX [Suspect]
     Indication: MULTIPLE SCLEROSIS
     Dosage: IM
     Route: 030
     Dates: end: 20041203

REACTIONS (5)
  - FALL [None]
  - HIP FRACTURE [None]
  - MUSCLE SPASMS [None]
  - UPPER LIMB FRACTURE [None]
  - WHEELCHAIR USER [None]
